FAERS Safety Report 14921681 (Version 1)
Quarter: 2018Q2

REPORT INFORMATION
  Report Type: Spontaneous
  Country: US (occurrence: US)
  Receive Date: 20180522
  Receipt Date: 20180522
  Transmission Date: 20180711
  Serious: Yes (Hospitalization, Other)
  Sender: FDA-Public Use
  Company Number: US-AUROBINDO-AUR-APL-2018-025813

PATIENT
  Age: 59 Year
  Sex: Female

DRUGS (3)
  1. MYCOPHENOLATE MOFETIL. [Suspect]
     Active Substance: MYCOPHENOLATE MOFETIL
     Indication: IMMUNOSUPPRESSION
     Dosage: UNK
     Route: 065
  2. PREDNISONE. [Suspect]
     Active Substance: PREDNISONE
     Indication: IMMUNOSUPPRESSION
     Dosage: UNK
     Route: 065
  3. TACROLIMUS. [Suspect]
     Active Substance: TACROLIMUS
     Indication: IMMUNOSUPPRESSION
     Dosage: UNK
     Route: 065

REACTIONS (15)
  - Acanthamoeba infection [Recovering/Resolving]
  - Nasal congestion [Recovering/Resolving]
  - Uveitis [Recovering/Resolving]
  - Rash erythematous [Recovering/Resolving]
  - Skin ulcer [Recovering/Resolving]
  - Stenotrophomonas infection [Recovering/Resolving]
  - Dermatitis [Recovering/Resolving]
  - Endophthalmitis [Recovering/Resolving]
  - Anterior chamber inflammation [Recovering/Resolving]
  - Scleritis [Recovering/Resolving]
  - Bacterial infection [Recovering/Resolving]
  - Staphylococcal infection [Recovering/Resolving]
  - Blindness [Recovering/Resolving]
  - Pain of skin [Recovering/Resolving]
  - Endocrine ophthalmopathy [Recovering/Resolving]
